FAERS Safety Report 9113208 (Version 3)
Quarter: 2017Q1

REPORT INFORMATION
  Report Type: Spontaneous
  Country: US (occurrence: US)
  Receive Date: 20130211
  Receipt Date: 20170308
  Transmission Date: 20170429
  Serious: Yes (Hospitalization, Other)
  Sender: FDA-Public Use
  Company Number: US-ENDO PHARMACEUTICALS INC.-OPCR20130069

PATIENT
  Age: 48 Year
  Sex: Female

DRUGS (1)
  1. OPANA ER [Suspect]
     Active Substance: OXYMORPHONE HYDROCHLORIDE
     Indication: PRODUCT USED FOR UNKNOWN INDICATION
     Dosage: UNK UNK, UNKNOWN
     Route: 042
     Dates: end: 20130101

REACTIONS (17)
  - Angina pectoris [Recovered/Resolved]
  - Blindness [Recovered/Resolved]
  - Hyperglycaemia [Recovered/Resolved]
  - Dyspnoea [Recovered/Resolved]
  - Abdominal pain [Recovered/Resolved]
  - Electrocardiogram ST segment elevation [Recovered/Resolved]
  - Thrombotic microangiopathy [Recovered/Resolved]
  - Acute kidney injury [Recovered/Resolved]
  - Myocardial infarction [Recovered/Resolved]
  - Intentional product use issue [Recovered/Resolved]
  - Intentional product misuse [Recovered/Resolved]
  - Diarrhoea [Recovered/Resolved]
  - Haemolytic uraemic syndrome [Recovered/Resolved]
  - Hypoaesthesia [Recovered/Resolved]
  - Ejection fraction decreased [Recovered/Resolved]
  - Pericarditis [Recovered/Resolved]
  - Mental status changes [Recovered/Resolved]

NARRATIVE: CASE EVENT DATE: 20130103
